FAERS Safety Report 5268670-6 (Version None)
Quarter: 2007Q1

REPORT INFORMATION
  Report Type: 
  Country: None (occurrence: None)
  Receive Date: 20061214
  Receipt Date: 20061018
  Transmission Date: 20070707
  Serious: No
  Sender: FDA-Public Use
  Company Number: IND-AE-06-SAN-043

PATIENT
  Age: 73 Year
  Sex: Male

DRUGS (2)
  1. SANCTURA [Suspect]
     Indication: HYPERTONIC BLADDER
     Dosage: 20MG QD ORAL
     Route: 048
     Dates: start: 20060901, end: 20061017
  2. DOXAZOSIN MESYLATE [Concomitant]

REACTIONS (1)
  - URINARY RETENTION [None]
